FAERS Safety Report 10753015 (Version 1)
Quarter: 2015Q1

REPORT INFORMATION
  Report Type: Report from Study
  Country: BR (occurrence: BR)
  Receive Date: 20150130
  Receipt Date: 20150130
  Transmission Date: 20150721
  Serious: Yes (Hospitalization, Other)
  Sender: FDA-Public Use
  Company Number: BR-ABBVIE-13P-020-1068941-00

PATIENT
  Sex: Female
  Weight: 78 kg

DRUGS (6)
  1. HUMIRA [Suspect]
     Active Substance: ADALIMUMAB
     Route: 058
  2. HUMIRA [Suspect]
     Active Substance: ADALIMUMAB
     Dosage: WEEK 1
     Route: 058
  3. BUSCOPAN [Concomitant]
     Active Substance: BUTYLSCOPOLAMINE BROMIDE
     Indication: PAIN
  4. HUMIRA [Suspect]
     Active Substance: ADALIMUMAB
     Indication: CROHN^S DISEASE
     Dosage: WEEK 0
     Route: 058
     Dates: start: 20110729, end: 20110729
  5. IRON [Concomitant]
     Active Substance: IRON
     Indication: CARDIAC DISORDER
  6. CALCIUM [Concomitant]
     Active Substance: CALCIUM
     Indication: PRODUCT USED FOR UNKNOWN INDICATION

REACTIONS (7)
  - Anaemia [Recovering/Resolving]
  - Intestinal fistula [Unknown]
  - Fistula [Unknown]
  - Intestinal prolapse [Unknown]
  - Cystitis [Unknown]
  - Platelet count decreased [Recovered/Resolved]
  - Fistula discharge [Not Recovered/Not Resolved]

NARRATIVE: CASE EVENT DATE: 2013
